FAERS Safety Report 16805076 (Version 1)
Quarter: 2019Q3

REPORT INFORMATION
  Report Type: Spontaneous
  Country: FR (occurrence: FR)
  Receive Date: 20190913
  Receipt Date: 20190913
  Transmission Date: 20191005
  Serious: Yes (Other)
  Sender: FDA-Public Use
  Company Number: FR-ASTRAZENECA-2019SF29920

PATIENT
  Age: 60 Year
  Sex: Male

DRUGS (2)
  1. ZOMETA [Suspect]
     Active Substance: ZOLEDRONIC ACID
     Indication: BONE DISORDER
     Dosage: 4.0MG UNKNOWN
     Route: 042
     Dates: start: 20190809, end: 20190809
  2. MOVENTIG [Suspect]
     Active Substance: NALOXEGOL OXALATE
     Indication: CONSTIPATION
     Dosage: 25.0MG UNKNOWN
     Route: 048
     Dates: start: 20190810

REACTIONS (1)
  - Orbital oedema [Recovered/Resolved]

NARRATIVE: CASE EVENT DATE: 20190811
